FAERS Safety Report 23647275 (Version 4)
Quarter: 2024Q3

REPORT INFORMATION
  Report Type: Spontaneous
  Country: TR (occurrence: TR)
  Receive Date: 20240319
  Receipt Date: 20240701
  Transmission Date: 20241017
  Serious: No
  Sender: PFIZER
  Company Number: TR-PFIZER INC-PV202400024424

PATIENT
  Age: 13 Year
  Sex: Male

DRUGS (2)
  1. ENBREL [Suspect]
     Active Substance: BENZYL ALCOHOL\ETANERCEPT
     Indication: Juvenile idiopathic arthritis
     Dosage: 50 MG, WEEKLY
     Route: 030
     Dates: start: 20230828
  2. MEKSRATU [Concomitant]
     Indication: Juvenile idiopathic arthritis
     Dosage: 15 MG, WEEKLY

REACTIONS (3)
  - Device failure [Unknown]
  - Device leakage [Unknown]
  - Drug dose omission by device [Unknown]
